FAERS Safety Report 16531783 (Version 1)
Quarter: 2019Q3

REPORT INFORMATION
  Report Type: Report from Study
  Country: None (occurrence: CA)
  Receive Date: 20190705
  Receipt Date: 20190705
  Transmission Date: 20191004
  Serious: Yes (Other)
  Sender: FDA-Public Use
  Company Number: CA-ABBVIE-19K-028-2842371-00

PATIENT
  Sex: Male

DRUGS (1)
  1. HUMIRA [Suspect]
     Active Substance: ADALIMUMAB
     Indication: CROHN^S DISEASE
     Route: 058
     Dates: start: 20130612

REACTIONS (4)
  - Skin fissures [Not Recovered/Not Resolved]
  - Fistula [Unknown]
  - Arteriovenous fistula site haemorrhage [Not Recovered/Not Resolved]
  - Rash pustular [Not Recovered/Not Resolved]
